FAERS Safety Report 17174764 (Version 1)
Quarter: 2019Q4

REPORT INFORMATION
  Report Type: Spontaneous
  Country: GB (occurrence: GB)
  Receive Date: 20191219
  Receipt Date: 20191219
  Transmission Date: 20200122
  Serious: Yes (Other)
  Sender: FDA-Public Use
  Company Number: GB-ROCHE-2492993

PATIENT
  Age: 59 Year
  Sex: Female

DRUGS (1)
  1. ROACTEMRA [Suspect]
     Active Substance: TOCILIZUMAB
     Indication: TEMPORAL ARTERITIS
     Route: 042
     Dates: start: 201807

REACTIONS (5)
  - Cerebrovascular accident [Unknown]
  - Off label use [Unknown]
  - Intentional product use issue [Unknown]
  - Cushingoid [Unknown]
  - Hypertension [Unknown]
